FAERS Safety Report 9607290 (Version 2)
Quarter: 2014Q1

REPORT INFORMATION
  Report Type: Spontaneous
  Country: US (occurrence: US)
  Receive Date: 20131009
  Receipt Date: 20140206
  Transmission Date: 20141002
  Serious: No
  Sender: FDA-Public Use
  Company Number: US-009507513-1310USA003374

PATIENT
  Age: 55 Year
  Sex: Female

DRUGS (5)
  1. DULERA [Suspect]
     Indication: ASTHMA
     Dosage: 1 DF, BID
     Route: 055
     Dates: start: 201307
  2. DULERA [Suspect]
     Dosage: 1 DF, BID
     Route: 055
     Dates: start: 201209
  3. SINGULAIR [Concomitant]
  4. LOSARTAN POTASSIUM [Concomitant]
  5. SYNTHROID [Concomitant]

REACTIONS (6)
  - Candida infection [Recovered/Resolved]
  - Upper-airway cough syndrome [Not Recovered/Not Resolved]
  - Cough [Not Recovered/Not Resolved]
  - Malaise [Not Recovered/Not Resolved]
  - Drug dose omission [Unknown]
  - Product quality issue [Unknown]
